FAERS Safety Report 6439946-1 (Version None)
Quarter: 2009Q4

REPORT INFORMATION
  Report Type: 
  Country: None (occurrence: None)
  Receive Date: 20091113
  Receipt Date: 20091103
  Transmission Date: 20100525
  Serious: Yes (Other)
  Sender: FDA-Public Use
  Company Number: IL-TYCO HEALTHCARE/MALLINCKRODT-T200902038

PATIENT
  Age: 2 Day

DRUGS (3)
  1. OPTIRAY 350 [Suspect]
     Dosage: 1-3 ML/KG
     Route: 042
  2. POVIDONE IODINE [Suspect]
     Indication: PROPHYLAXIS
     Dosage: 3 SWABS OVER ENTIRE CHEST AREA (14 DAYS OLD)
     Route: 061
  3. POVIDONE IODINE [Suspect]
     Dosage: 3 SWABS OVER ENTIRE CHEST AREA (15 DAYS OLD)
     Route: 061

REACTIONS (1)
  - HYPOTHYROIDISM [None]
